FAERS Safety Report 17452512 (Version 1)
Quarter: 2020Q1

REPORT INFORMATION
  Report Type: Spontaneous
  Country: US (occurrence: US)
  Receive Date: 20200224
  Receipt Date: 20200224
  Transmission Date: 20200409
  Serious: Yes (Other)
  Sender: FDA-Public Use
  Company Number: US-PFIZER INC-2020067076

PATIENT
  Age: 35 Year
  Sex: Female
  Weight: 136.8 kg

DRUGS (1)
  1. PREPARATION H MEDICATED WIPES [Suspect]
     Active Substance: WITCH HAZEL
     Indication: HAEMORRHOIDS
     Dosage: UNK UNK, AS NEEDED (APPLIED WIPES TO HERSELF AS NEEDED)

REACTIONS (4)
  - Meniscus injury [Unknown]
  - Poor quality product administered [Not Recovered/Not Resolved]
  - Product physical issue [Not Recovered/Not Resolved]
  - Discomfort [Not Recovered/Not Resolved]

NARRATIVE: CASE EVENT DATE: 201906
